FAERS Safety Report 9108159 (Version 2)
Quarter: 2013Q2

REPORT INFORMATION
  Report Type: Spontaneous
  Country: FR (occurrence: FR)
  Receive Date: 20130221
  Receipt Date: 20130403
  Transmission Date: 20140414
  Serious: No
  Sender: FDA-Public Use
  Company Number: FR-JNJFOC-20130208732

PATIENT
  Age: 68 Year
  Sex: Female

DRUGS (1)
  1. DUROGESIC [Suspect]
     Indication: PRODUCT USED FOR UNKNOWN INDICATION
     Route: 062
     Dates: start: 20130211

REACTIONS (3)
  - Product quality issue [Recovered/Resolved]
  - Wrong technique in drug usage process [Recovered/Resolved]
  - Pain [Recovered/Resolved]
